FAERS Safety Report 9481375 (Version 2)
Quarter: 2013Q3

REPORT INFORMATION
  Report Type: Spontaneous
  Country: US (occurrence: US)
  Receive Date: 20130828
  Receipt Date: 20130828
  Transmission Date: 20140515
  Serious: Yes (Other)
  Sender: FDA-Public Use
  Company Number: US-AMGEN-KDL146225

PATIENT
  Age: 48 Year
  Sex: Female

DRUGS (1)
  1. ENBREL [Suspect]
     Indication: ANKYLOSING SPONDYLITIS
     Dosage: 50 MG, QWK
     Route: 058
     Dates: start: 20050705

REACTIONS (5)
  - Cervical dysplasia [Unknown]
  - Subcutaneous abscess [Unknown]
  - Blood potassium abnormal [Unknown]
  - Blister [Recovered/Resolved]
  - Cellulitis [Unknown]
